FAERS Safety Report 4882938-4 (Version None)
Quarter: 2006Q1

REPORT INFORMATION
  Report Type: 
  Country: None (occurrence: None)
  Receive Date: 20060118
  Receipt Date: 20060105
  Transmission Date: 20060701
  Serious: Yes (Hospitalization)
  Sender: FDA-Public Use
  Company Number: FR-BOEHRINGER INGELHEIM PHARMACEUTICALS, INC.-2006-FF-00011FF

PATIENT
  Sex: Female

DRUGS (8)
  1. VIRAMUNE [Suspect]
     Indication: HUMAN IMMUNODEFICIENCY VIRUS TRANSMISSION
     Route: 048
     Dates: start: 19990521, end: 19990521
  2. RETROVIR [Suspect]
     Indication: HUMAN IMMUNODEFICIENCY VIRUS TRANSMISSION
     Route: 048
  3. RETROVIR [Suspect]
     Route: 015
     Dates: end: 19990521
  4. RETROVIR [Suspect]
     Route: 015
     Dates: start: 19990521, end: 19990521
  5. EPIVIR [Suspect]
     Indication: HUMAN IMMUNODEFICIENCY VIRUS TRANSMISSION
     Route: 048
  6. EPIVIR [Suspect]
     Route: 015
     Dates: end: 19990521
  7. IRON [Concomitant]
     Route: 015
  8. VITAMINS [Concomitant]
     Route: 015

REACTIONS (9)
  - ALANINE AMINOTRANSFERASE INCREASED [None]
  - ANAEMIA MACROCYTIC [None]
  - ASPARTATE AMINOTRANSFERASE INCREASED [None]
  - CAESAREAN SECTION [None]
  - DRUG EXPOSURE DURING PREGNANCY [None]
  - HYPERTONIA [None]
  - HYPERTRIGLYCERIDAEMIA [None]
  - INFANTILE APNOEIC ATTACK [None]
  - NEUTROPENIA [None]
